FAERS Safety Report 19836911 (Version 1)
Quarter: 2021Q3

REPORT INFORMATION
  Report Type: Other
  Country: CH (occurrence: CH)
  Receive Date: 20210916
  Receipt Date: 20210916
  Transmission Date: 20211014
  Serious: Yes (Hospitalization, Other)
  Sender: FDA-Public Use
  Company Number: CH-DENTSPLY-2021SCDP000183

PATIENT
  Age: 33 Year
  Sex: Female

DRUGS (2)
  1. LIDOCAINE. [Suspect]
     Active Substance: LIDOCAINE
     Indication: INFILTRATION ANAESTHESIA
     Dosage: 3500 MILLILITER TUMESCENT SOLUTION (0.030 G/100 ML)
  2. PRILOCAINE [Suspect]
     Active Substance: PRILOCAINE
     Indication: INFILTRATION ANAESTHESIA
     Dosage: 3500 MILLILITER TUMESCENT SOLUTION (0.025 G/100 ML)

REACTIONS (7)
  - Radius fracture [Recovered/Resolved]
  - Cyanosis [None]
  - Fall [None]
  - Presyncope [None]
  - Methaemoglobinaemia [None]
  - Skin laceration [Recovered/Resolved]
  - Haemorrhage [Recovered/Resolved]
